FAERS Safety Report 8054784-4 (Version None)
Quarter: 2012Q1

REPORT INFORMATION
  Report Type: 
  Country: None (occurrence: None)
  Receive Date: 20120112
  Receipt Date: 20120105
  Transmission Date: 20120608
  Serious: Yes (Hospitalization)
  Sender: FDA-Public Use
  Company Number: 2012MA000322

PATIENT
  Age: 2 Year
  Sex: Male

DRUGS (7)
  1. RANITIDINE [Concomitant]
  2. NAPROXEN [Suspect]
     Indication: BARTTER'S SYNDROME
     Dosage: 60 MG; BID; PO
     Route: 048
     Dates: start: 20110518, end: 20111226
  3. POTASSIUM CHLORIDE [Concomitant]
  4. SPIRONOLACTONE [Concomitant]
  5. SODIUM CHLORIDE [Concomitant]
  6. INDOMETHACIN [Concomitant]
  7. NSAID [Concomitant]

REACTIONS (1)
  - HYPOKALAEMIA [None]
